FAERS Safety Report 8697182 (Version 5)
Quarter: 2013Q4

REPORT INFORMATION
  Report Type: Report from Study
  Country: JP (occurrence: JP)
  Receive Date: 20120801
  Receipt Date: 20131115
  Transmission Date: 20140711
  Serious: Yes (Hospitalization, Other)
  Sender: FDA-Public Use
  Company Number: JP-VERTEX PHARMACEUTICALS INC.-AE-2012-010992

PATIENT
  Age: 62 Year
  Sex: Male

DRUGS (25)
  1. VX-950 (TELAPREVIR) [Suspect]
     Indication: CHRONIC HEPATITIS C
     Dosage: 1500 MG, QD
     Route: 048
     Dates: start: 20120604, end: 20120615
  2. VX-950 (TELAPREVIR) [Suspect]
     Dosage: 750 MG, QD
     Route: 048
     Dates: start: 20120616, end: 20120617
  3. VX-950 (TELAPREVIR) [Suspect]
     Dosage: 1500 MG, QD
     Route: 048
     Dates: start: 20120618, end: 20120624
  4. RIBAVIRIN [Suspect]
     Indication: CHRONIC HEPATITIS C
     Dosage: 800 MG, QD
     Route: 048
     Dates: start: 20120604, end: 20120604
  5. RIBAVIRIN [Suspect]
     Dosage: 600 MG, QD
     Route: 048
     Dates: start: 20120605, end: 20120614
  6. RIBAVIRIN [Suspect]
     Dosage: 400 MG, QD
     Route: 048
     Dates: start: 20120615, end: 20120617
  7. RIBAVIRIN [Suspect]
     Dosage: 200 MG, QD
     Route: 048
     Dates: start: 20120618, end: 20120624
  8. PEGINTERFERON ALFA-2B [Suspect]
     Indication: CHRONIC HEPATITIS C
     Dosage: 1.5 UNK, QW
     Route: 048
     Dates: start: 20120604, end: 20120624
  9. FLUITRAN [Concomitant]
     Dosage: 1 MG, QD
     Route: 048
  10. MAINTATE [Concomitant]
     Dosage: 5 MG, QD
     Route: 048
  11. AMLODIN [Concomitant]
     Dosage: 5 MG, QD
     Route: 048
  12. PLAVIX [Concomitant]
     Dosage: 75 MG, QD
     Route: 048
     Dates: end: 20121006
  13. PLAVIX [Concomitant]
     Dosage: 75 MG, QD
     Route: 048
     Dates: start: 20121115
  14. BAYASPIRIN [Concomitant]
     Dosage: 100 MG, QD
     Route: 048
     Dates: end: 20121009
  15. BAYASPIRIN [Concomitant]
     Dosage: 100 MG, QD
     Route: 048
     Dates: start: 20121115
  16. RENIVACE [Concomitant]
     Dosage: 10 MG, QD
     Route: 048
  17. PERYCIT [Concomitant]
     Dosage: 750 MG, QD
     Route: 048
  18. CRESTOR [Concomitant]
     Dosage: 5 MG, QD
     Route: 048
  19. BASEN [Concomitant]
     Dosage: 0.9 MG, QD
     Route: 048
     Dates: end: 20121109
  20. FESIN [Concomitant]
     Dosage: 80 MG, QD
     Route: 042
     Dates: start: 20120605, end: 20120608
  21. NEO MINOPHAGEN C [Concomitant]
     Dosage: 40 ML, QD/PRN
     Route: 042
     Dates: start: 20120725
  22. NEO MINOPHAGEN C [Concomitant]
     Dosage: 40 ML, QD
     Route: 041
     Dates: end: 20120912
  23. URSO [Concomitant]
     Dosage: 6 DF, QD
     Route: 048
     Dates: start: 20120912
  24. ALLEGRA [Concomitant]
     Dosage: 120 MG, QD
     Route: 048
  25. CALONAL [Concomitant]
     Dosage: 400 MG, QD
     Route: 048

REACTIONS (4)
  - Renal haematoma [Recovered/Resolved]
  - Decreased appetite [Recovered/Resolved]
  - Haemoglobin decreased [Recovered/Resolved]
  - Hepatic cancer [Recovered/Resolved]
